FAERS Safety Report 8032775-7 (Version None)
Quarter: 2012Q1

REPORT INFORMATION
  Report Type: 
  Country: None (occurrence: None)
  Receive Date: 20120110
  Receipt Date: 20120106
  Transmission Date: 20120608
  Serious: Yes (Other)
  Sender: FDA-Public Use
  Company Number: US-BAYER-2012-001821

PATIENT
  Age: 27 Year
  Sex: Female

DRUGS (2)
  1. BETASERON [Suspect]
     Indication: MULTIPLE SCLEROSIS
     Dosage: 8 MIU, QOD
     Route: 058
     Dates: start: 20110106
  2. MOTRIN [Concomitant]
     Indication: PREMEDICATION

REACTIONS (7)
  - CHILLS [None]
  - TREMOR [None]
  - OPTIC NEURITIS [None]
  - HEADACHE [None]
  - URINARY TRACT INFECTION [None]
  - EYE PAIN [None]
  - OVARIAN CYST [None]
